FAERS Safety Report 17136077 (Version 1)
Quarter: 2019Q4

REPORT INFORMATION
  Report Type: Spontaneous
  Country: FR (occurrence: FR)
  Receive Date: 20191210
  Receipt Date: 20191210
  Transmission Date: 20200122
  Serious: Yes (Hospitalization)
  Sender: FDA-Public Use
  Company Number: FR-MYLANLABS-2019M1120787

PATIENT
  Age: 35 Year
  Sex: Male

DRUGS (2)
  1. ACICLOVIR MYLAN 250 MG, POUDRE POUR SOLUTION INJECTABLE (I.V.) [Suspect]
     Active Substance: ACYCLOVIR
     Indication: ENCEPHALITIS
     Dosage: 800 MILLIGRAM, Q8H
     Route: 042
     Dates: start: 20190713, end: 20190714
  2. IOMERON [Suspect]
     Active Substance: IOMEPROL
     Indication: COMPUTERISED TOMOGRAM
     Dosage: 350 MILLIGRAM, TOTAL
     Route: 042
     Dates: start: 20190714, end: 20190714

REACTIONS (3)
  - Erythema [Recovered/Resolved]
  - Renal failure [Recovered/Resolved]
  - Pruritus [Recovered/Resolved]

NARRATIVE: CASE EVENT DATE: 20190714
